FAERS Safety Report 24887860 (Version 2)
Quarter: 2025Q2

REPORT INFORMATION
  Report Type: Spontaneous
  Country: PT (occurrence: PT)
  Receive Date: 20250127
  Receipt Date: 20250523
  Transmission Date: 20250716
  Serious: Yes (Other)
  Sender: NOVO NORDISK
  Company Number: PT-NOVOPROD-1352846

PATIENT
  Age: 38 Year
  Sex: Male

DRUGS (4)
  1. SAXENDA [Suspect]
     Active Substance: LIRAGLUTIDE
  2. SAXENDA [Suspect]
     Active Substance: LIRAGLUTIDE
     Dosage: 2.4 MG, QD
  3. SAXENDA [Suspect]
     Active Substance: LIRAGLUTIDE
     Indication: Obesity
  4. SAXENDA [Suspect]
     Active Substance: LIRAGLUTIDE

REACTIONS (2)
  - Erectile dysfunction [Recovered/Resolved]
  - Loss of libido [Recovered/Resolved]
